FAERS Safety Report 12497292 (Version 3)
Quarter: 2016Q3

REPORT INFORMATION
  Report Type: Report from Study
  Country: US (occurrence: US)
  Receive Date: 20160624
  Receipt Date: 20160920
  Transmission Date: 20161109
  Serious: Yes (Other)
  Sender: FDA-Public Use
  Company Number: US-BAYER-2016-047476

PATIENT
  Age: 72 Year
  Sex: Female
  Weight: 112 kg

DRUGS (6)
  1. ADEMPAS [Suspect]
     Active Substance: RIOCIGUAT
     Indication: PULMONARY ARTERIAL HYPERTENSION
     Dosage: UNK
     Route: 048
     Dates: start: 20151016
  2. ADEMPAS [Suspect]
     Active Substance: RIOCIGUAT
     Indication: PULMONARY ARTERIAL HYPERTENSION
     Dosage: 2.5 MG, UNK
     Route: 048
  3. ADEMPAS [Suspect]
     Active Substance: RIOCIGUAT
     Indication: PULMONARY ARTERIAL HYPERTENSION
     Dosage: 2.5 MG, TID
     Route: 048
  4. OXYGEN. [Concomitant]
     Active Substance: OXYGEN
     Dosage: UNK
  5. LETAIRIS [Suspect]
     Active Substance: AMBRISENTAN
     Dosage: 5 MG, QD
     Route: 065
     Dates: start: 20150610
  6. ADEMPAS [Suspect]
     Active Substance: RIOCIGUAT
     Indication: PULMONARY ARTERIAL HYPERTENSION
     Dosage: 2 MG, TID
     Route: 048

REACTIONS (10)
  - Dry skin [Unknown]
  - Dry mouth [Unknown]
  - Dyspnoea [Unknown]
  - Joint swelling [Unknown]
  - Pulmonary thrombosis [Not Recovered/Not Resolved]
  - Adverse event [None]
  - Oedema peripheral [Unknown]
  - Dyspnoea [Not Recovered/Not Resolved]
  - Pruritus [None]
  - Rash [None]
